FAERS Safety Report 11494282 (Version 1)
Quarter: 2015Q3

REPORT INFORMATION
  Report Type: Spontaneous
  Country: US (occurrence: US)
  Receive Date: 20150911
  Receipt Date: 20150911
  Transmission Date: 20151125
  Serious: Yes (Other)
  Sender: FDA-Public Use
  Company Number: US-ROCHE-720515

PATIENT
  Age: 48 Year
  Sex: Female

DRUGS (5)
  1. TELAPREVIR [Concomitant]
     Active Substance: TELAPREVIR
     Route: 065
     Dates: start: 20110819, end: 20111118
  2. PEGASYS [Suspect]
     Active Substance: PEGINTERFERON ALFA-2A
     Route: 058
  3. PEGASYS [Suspect]
     Active Substance: PEGINTERFERON ALFA-2A
     Indication: HEPATITIS C
     Dosage: PRE FILLED SYRINGE
     Route: 058
     Dates: start: 20100804, end: 20101228
  4. RIBAVIRIN. [Suspect]
     Active Substance: RIBAVIRIN
     Indication: HEPATITIS C
     Dosage: DIVIDED DOSES, FORM: PILLS
     Route: 048
     Dates: start: 20100804, end: 20110104
  5. RIBAVIRIN. [Suspect]
     Active Substance: RIBAVIRIN
     Route: 048

REACTIONS (16)
  - Memory impairment [Not Recovered/Not Resolved]
  - Insomnia [Unknown]
  - Bronchitis [Unknown]
  - Oral mucosal blistering [Not Recovered/Not Resolved]
  - Drug ineffective [Unknown]
  - Pain [Not Recovered/Not Resolved]
  - Back pain [Not Recovered/Not Resolved]
  - Vomiting [Unknown]
  - Pneumonia [Recovering/Resolving]
  - Hyperhidrosis [Not Recovered/Not Resolved]
  - Toothache [Unknown]
  - Rhinorrhoea [Recovering/Resolving]
  - Infected skin ulcer [Not Recovered/Not Resolved]
  - Tongue coated [Unknown]
  - Irritability [Unknown]
  - Tooth fracture [Unknown]

NARRATIVE: CASE EVENT DATE: 20100804
